FAERS Safety Report 5127463-0 (Version None)
Quarter: 2006Q4

REPORT INFORMATION
  Report Type: 
  Country: None (occurrence: None)
  Receive Date: 20061010
  Receipt Date: 20060926
  Transmission Date: 20070319
  Serious: Yes (Hospitalization)
  Sender: FDA-Public Use
  Company Number: 2006115036

PATIENT
  Age: 73 Year
  Sex: Female

DRUGS (6)
  1. ALDACTONE [Suspect]
     Indication: RENAL FAILURE CHRONIC
     Dosage: (100 MG, EVERY DAY); ORAL
     Route: 048
     Dates: end: 20060702
  2. FUROSEMIDE [Suspect]
     Indication: RENAL FAILURE CHRONIC
     Dosage: (EVERY DAY); ORAL
     Route: 048
     Dates: end: 20060702
  3. EBASTINE [Suspect]
     Indication: PRURITUS
     Dosage: 10 MG (10 MG, 1 IN 1 D); ORAL
     Route: 048
     Dates: start: 20060702, end: 20060702
  4. OMEPRAZOLE [Concomitant]
  5. NORFLOXACIN [Concomitant]
  6. LEVOTHYROXINE SODIUM [Concomitant]

REACTIONS (8)
  - ASPARTATE AMINOTRANSFERASE INCREASED [None]
  - BLOOD BILIRUBIN INCREASED [None]
  - BLOOD CREATININE INCREASED [None]
  - BLOOD POTASSIUM DECREASED [None]
  - DRUG INTERACTION [None]
  - ENCEPHALOPATHY [None]
  - GAMMA-GLUTAMYLTRANSFERASE INCREASED [None]
  - HAEMATOCRIT DECREASED [None]
